FAERS Safety Report 4513222-6 (Version None)
Quarter: 2004Q4

REPORT INFORMATION
  Report Type: 
  Country: None (occurrence: None)
  Receive Date: 20041130
  Receipt Date: 20030605
  Transmission Date: 20050328
  Serious: Yes (Hospitalization, Disabling)
  Sender: FDA-Public Use
  Company Number: US-MERCK-0306USA00886

PATIENT
  Age: 59 Year
  Sex: Female
  Weight: 92 kg

DRUGS (6)
  1. VIOXX [Suspect]
     Route: 048
     Dates: start: 20000501
  2. VIOXX [Suspect]
     Route: 048
     Dates: start: 20001001
  3. ESTROGENS, CONJUGATED [Concomitant]
     Route: 065
  4. DESYREL [Concomitant]
     Indication: INSOMNIA
     Route: 065
  5. ASPIRIN [Concomitant]
     Route: 065
  6. MSM COMPLETE [Concomitant]
     Route: 065

REACTIONS (37)
  - ABDOMINAL DISCOMFORT [None]
  - ABDOMINAL DISTENSION [None]
  - ABDOMINAL PAIN LOWER [None]
  - ABDOMINAL TENDERNESS [None]
  - ADVERSE EVENT [None]
  - ARTHRALGIA [None]
  - ATRIAL FIBRILLATION [None]
  - BLOOD PRESSURE INCREASED [None]
  - BRONCHITIS [None]
  - CARDIAC ENZYMES INCREASED [None]
  - CONSTIPATION [None]
  - COUGH [None]
  - DIVERTICULUM [None]
  - DIVERTICULUM INTESTINAL [None]
  - DYSPNOEA [None]
  - EYE PAIN [None]
  - FATIGUE [None]
  - FLATULENCE [None]
  - GASTRIC DISORDER [None]
  - GASTROOESOPHAGEAL REFLUX DISEASE [None]
  - HEADACHE [None]
  - HEART RATE IRREGULAR [None]
  - HYPERHIDROSIS [None]
  - HYPERTENSIVE HEART DISEASE [None]
  - INJURY [None]
  - LYMPHADENOPATHY [None]
  - MITRAL VALVE INCOMPETENCE [None]
  - MYOCARDIAL ISCHAEMIA [None]
  - NAUSEA [None]
  - NECK PAIN [None]
  - OESOPHAGEAL SPASM [None]
  - PAIN IN EXTREMITY [None]
  - PALPITATIONS [None]
  - SINUSITIS [None]
  - TACHYARRHYTHMIA [None]
  - TRICUSPID VALVE INCOMPETENCE [None]
  - VENTRICULAR HYPERTROPHY [None]
